FAERS Safety Report 8220673-5 (Version None)
Quarter: 2012Q1

REPORT INFORMATION
  Report Type: 
  Country: None (occurrence: None)
  Receive Date: 20120320
  Receipt Date: 20120308
  Transmission Date: 20120608
  Serious: Yes (Other)
  Sender: FDA-Public Use
  Company Number: FR-ELI_LILLY_AND_COMPANY-FR201107006349

PATIENT
  Age: 46 Year
  Sex: Male

DRUGS (2)
  1. ZYPREXA [Suspect]
     Dosage: 10 MG, BID
  2. OLANZAPINE [Suspect]
     Dosage: 300 MG, UNKNOWN
     Route: 030

REACTIONS (1)
  - MYOCARDIAL INFARCTION [None]
